FAERS Safety Report 10495568 (Version 1)
Quarter: 2014Q3

REPORT INFORMATION
  Report Type: Spontaneous
  Country: US (occurrence: None)
  Receive Date: 20140815
  Receipt Date: 20140815
  Transmission Date: 20150326
  Serious: Yes (Other)
  Sender: FDA-Public Use
  Company Number: ADR-2014-00433

PATIENT
  Age: 40 Year
  Sex: Female

DRUGS (1)
  1. LIORESAL [Suspect]
     Active Substance: BACLOFEN
     Indication: MUSCLE SPASTICITY
     Dosage: SEE B5

REACTIONS (7)
  - Implant site extravasation [None]
  - Implant site discharge [None]
  - Oedema [None]
  - Wound infection [None]
  - Cerebrospinal fluid leakage [None]
  - Purulent discharge [None]
  - Implant site swelling [None]
